FAERS Safety Report 20184245 (Version 1)
Quarter: 2021Q4

REPORT INFORMATION
  Report Type: Report from Study
  Country: RO (occurrence: RO)
  Receive Date: 20211214
  Receipt Date: 20211214
  Transmission Date: 20220303
  Serious: Yes (Other)
  Sender: FDA-Public Use
  Company Number: RO-ABBVIE-21P-135-4191096-00

PATIENT
  Age: 60 Year
  Sex: Male
  Weight: 75 kg

DRUGS (2)
  1. VENETOCLAX [Suspect]
     Active Substance: VENETOCLAX
     Indication: Acute myeloid leukaemia
     Dosage: DAY 1 -100MG ;DAY 2 - 200MG ; DAY 3 - 400 MG ; DAYS 4 TO 28 ? 600 MG
     Route: 048
  2. LOW DOSE CYTARABINE [Concomitant]
     Indication: Acute myeloid leukaemia
     Dosage: 10 DAYS
     Route: 058

REACTIONS (1)
  - Cytopenia [Unknown]
